FAERS Safety Report 23984555 (Version 1)
Quarter: 2024Q2

REPORT INFORMATION
  Report Type: Spontaneous
  Country: US (occurrence: US)
  Receive Date: 20240618
  Receipt Date: 20240618
  Transmission Date: 20240715
  Serious: No
  Sender: FDA-Public Use
  Company Number: US-AUROBINDO-AUR-APL-2023-060368

PATIENT
  Age: 77 Year
  Sex: Male
  Weight: 63.5 kg

DRUGS (2)
  1. FAMOTIDINE [Suspect]
     Active Substance: FAMOTIDINE
     Indication: Dyspepsia
     Dosage: 10 MILLIGRAM, ONCE A DAY
     Route: 065
     Dates: start: 20230913, end: 20230915
  2. CETIRIZINE [Concomitant]
     Active Substance: CETIRIZINE HYDROCHLORIDE
     Indication: Hypersensitivity
     Dosage: UNK
     Route: 065

REACTIONS (8)
  - Burning sensation [Unknown]
  - Dizziness [Unknown]
  - Dyspepsia [Unknown]
  - Feeling abnormal [Unknown]
  - Therapy cessation [Unknown]
  - Drug ineffective [Unknown]
  - Product use complaint [Unknown]
  - Product label issue [Unknown]
